FAERS Safety Report 7972769-0 (Version None)
Quarter: 2011Q4

REPORT INFORMATION
  Report Type: 
  Country: None (occurrence: None)
  Receive Date: 20111213
  Receipt Date: 20111208
  Transmission Date: 20120403
  Serious: No
  Sender: FDA-Public Use
  Company Number: US-PFIZER INC-2011300006

PATIENT
  Sex: Female

DRUGS (2)
  1. LEXAPRO [Suspect]
     Dosage: 5 MG, 1X/DAY (1 IN 1 D)
     Dates: start: 20111124
  2. DIFLUCAN [Suspect]
     Indication: FUNGAL INFECTION
     Dosage: UNK

REACTIONS (3)
  - TREMOR [None]
  - DECREASED APPETITE [None]
  - NAUSEA [None]
